FAERS Safety Report 19448885 (Version 1)
Quarter: 2021Q2

REPORT INFORMATION
  Report Type: Spontaneous
  Country: US (occurrence: US)
  Receive Date: 20210622
  Receipt Date: 20210622
  Transmission Date: 20210717
  Serious: No
  Sender: FDA-Public Use
  Company Number: US-PFIZER INC-2019558659

PATIENT
  Age: 65 Year
  Sex: Female

DRUGS (2)
  1. LYRICA [Suspect]
     Active Substance: PREGABALIN
     Indication: FIBROMYALGIA
     Dosage: 75 MG, TWICE DAILY (75 MG CAPSULE)
     Route: 048
  2. LYRICA [Suspect]
     Active Substance: PREGABALIN
     Indication: CERVICAL SPINAL STENOSIS
     Dosage: 150 MG, TWICE DAILY (150 MG CAPSULE)
     Route: 048

REACTIONS (2)
  - Hypersensitivity [Unknown]
  - Sinus disorder [Unknown]
